FAERS Safety Report 13623118 (Version 1)
Quarter: 2017Q2

REPORT INFORMATION
  Report Type: Spontaneous
  Country: CH (occurrence: CH)
  Receive Date: 20170607
  Receipt Date: 20170607
  Transmission Date: 20170830
  Serious: Yes (Hospitalization)
  Sender: FDA-Public Use
  Company Number: CH-UCBSA-2017021672

PATIENT
  Age: 71 Year
  Sex: Female

DRUGS (3)
  1. KEPPRA [Suspect]
     Active Substance: LEVETIRACETAM
     Indication: EPILEPSY
     Dosage: 2X500 MG-0-3X500 MG (STRENGTH: 500 MG)
     Dates: start: 2013
  2. VIMPAT [Suspect]
     Active Substance: LACOSAMIDE
     Indication: EPILEPSY
     Dosage: 150 MG, 2X/DAY (BID)
     Dates: start: 201609
  3. APHENYLBARBIT [Suspect]
     Active Substance: PHENOBARBITAL
     Indication: PRODUCT USED FOR UNKNOWN INDICATION
     Dosage: 1-0-1.5 (STRENGTH: 100 MG)

REACTIONS (5)
  - Generalised tonic-clonic seizure [Recovered/Resolved]
  - Hyponatraemia [Recovering/Resolving]
  - Urine osmolarity increased [Recovering/Resolving]
  - Dizziness [Unknown]
  - Inappropriate antidiuretic hormone secretion [Recovering/Resolving]

NARRATIVE: CASE EVENT DATE: 20170515
